FAERS Safety Report 9787587 (Version 2)
Quarter: 2014Q1

REPORT INFORMATION
  Report Type: Spontaneous
  Country: US (occurrence: None)
  Receive Date: 20131226
  Receipt Date: 20140129
  Transmission Date: 20141002
  Serious: Yes (Other)
  Sender: FDA-Public Use
  Company Number: 2013-US-004406

PATIENT
  Age: 66 Year
  Sex: Female
  Weight: 51.7 kg

DRUGS (14)
  1. XYREM (SODIUM OXYBATE) ORAL SOLUTION, 500 MG/ML [Suspect]
     Indication: NARCOLEPSY
     Route: 048
     Dates: start: 200805
  2. MEGACE (MEGESTROL ACETATE) [Concomitant]
  3. OCULAR LIBRICANT (PARAFFIN, LIQUID, PETROLATUM) [Concomitant]
  4. PRAVASTATIN (PRAVASTATIN SODIUM) [Concomitant]
  5. VITAMIN D (COLECALCIFEROL) [Concomitant]
  6. ASPIRIN (ACETYLSALICYLIC ACID) [Concomitant]
  7. CARDIZEM (DILTIAZEM HYDROCHLORIDE) [Concomitant]
  8. PLAVIX (CLOPIDOGREL BISULFATE) (CLOPIDOGREL BISULFATE) [Concomitant]
  9. SPIRIVA (TIOTROPIUM BROMIDE) (TIOTROPIUM BROMIDE) [Concomitant]
  10. ALBUTEROL (SALBUTAMOL SULFATE) [Concomitant]
  11. MECLIZINE (MECLOZINE HYDROCHLORIDE) (UNKNOWN) (MECLOZINE HYDROCHLORIDE) [Concomitant]
  12. CARISOPRODOL (CARISOPRODOL) [Concomitant]
  13. OXYCODONE (OXYCODONE HYDROCHLORIDE) (OXYCODONE) [Concomitant]
  14. CLONAZEPAM (CLONAZEPAM) (CLONAZEPAM) [Concomitant]

REACTIONS (9)
  - Foot fracture [None]
  - Fall [None]
  - Ear infection [None]
  - Dizziness postural [None]
  - Cerebrovascular accident [None]
  - Head injury [None]
  - Headache [None]
  - Fatigue [None]
  - Balance disorder [None]
